FAERS Safety Report 8491165-3 (Version None)
Quarter: 2012Q3

REPORT INFORMATION
  Report Type: 
  Country: None (occurrence: None)
  Receive Date: 20120706
  Receipt Date: 20120629
  Transmission Date: 20120928
  Serious: Yes (Other)
  Sender: FDA-Public Use
  Company Number: CA-AMGEN-CANSP2012040559

PATIENT
  Age: 49 Year
  Sex: Female

DRUGS (6)
  1. DOXORUBICIN HCL [Concomitant]
  2. DEXAMETHASONE [Concomitant]
  3. ONDANSETRON [Concomitant]
  4. NEULASTA [Suspect]
     Indication: CHEMOTHERAPY
     Dosage: 6 MG, PER CHEMO REGIM
     Route: 058
     Dates: start: 20120626
  5. CYCLOPHOSPHAMIDE [Concomitant]
  6. FLUOROURACIL [Concomitant]

REACTIONS (7)
  - THROAT TIGHTNESS [None]
  - CHEST DISCOMFORT [None]
  - DIZZINESS [None]
  - BLOOD PRESSURE INCREASED [None]
  - FLUSHING [None]
  - HEART RATE INCREASED [None]
  - CHILLS [None]
